FAERS Safety Report 18690186 (Version 11)
Quarter: 2021Q2

REPORT INFORMATION
  Report Type: Report from Study
  Country: BR (occurrence: BR)
  Receive Date: 20201231
  Receipt Date: 20210430
  Transmission Date: 20210717
  Serious: Yes (Life-Threatening, Hospitalization, Other)
  Sender: FDA-Public Use
  Company Number: BR-GILEAD-2020-0511174

PATIENT
  Age: 44 Year
  Sex: Female
  Weight: 146 kg

DRUGS (65)
  1. REMDESIVIR. [Suspect]
     Active Substance: REMDESIVIR
     Indication: COVID-19 PNEUMONIA
     Dosage: 100 ML, QD
     Route: 042
     Dates: start: 20201220, end: 20201220
  2. REMDESIVIR. [Suspect]
     Active Substance: REMDESIVIR
     Dosage: 200 ML, QD
     Route: 042
  3. PLACEBO [Suspect]
     Active Substance: UNSPECIFIED INGREDIENT
     Dosage: UNK
     Route: 042
     Dates: start: 20201220
  4. OXYGEN. [Concomitant]
     Active Substance: OXYGEN
     Indication: OXYGEN THERAPY
     Dosage: 55 %
     Route: 007
     Dates: start: 20201223
  5. OXYGEN. [Concomitant]
     Active Substance: OXYGEN
     Dosage: 50 UNK
     Route: 007
     Dates: start: 20201231
  6. OXYGEN. [Concomitant]
     Active Substance: OXYGEN
     Dosage: 35 UNK
     Route: 007
     Dates: start: 20210108
  7. OXYGEN. [Concomitant]
     Active Substance: OXYGEN
     Dosage: 100 UNK
     Route: 007
     Dates: start: 20201220
  8. OXYGEN. [Concomitant]
     Active Substance: OXYGEN
     Dosage: 21 UNK
     Route: 007
     Dates: start: 20210115
  9. OXYGEN. [Concomitant]
     Active Substance: OXYGEN
     Dosage: 25 UNK
     Route: 007
     Dates: start: 20210114
  10. LOSARTANA POTASSICA [Concomitant]
     Active Substance: LOSARTAN
     Indication: HYPERTENSION
     Dosage: 50 MG, QD
     Dates: start: 20201219, end: 20201220
  11. ETOMIDATE. [Concomitant]
     Active Substance: ETOMIDATE
     Indication: ENDOTRACHEAL INTUBATION
     Dosage: 2 ML
     Dates: start: 20201220, end: 20201220
  12. OXYGEN. [Concomitant]
     Active Substance: OXYGEN
     Dosage: 100 UNK
     Route: 007
     Dates: start: 20201221
  13. OXYGEN. [Concomitant]
     Active Substance: OXYGEN
     Dosage: 60 UNK
     Route: 007
     Dates: start: 20201225
  14. ATENOLOL. [Concomitant]
     Active Substance: ATENOLOL
     Indication: HYPERTENSION
     Dosage: 50 MG, QD
     Dates: start: 20201219, end: 20201220
  15. HYPROMELLOSE [Concomitant]
     Active Substance: HYPROMELLOSES
  16. MIDAZOLAM. [Concomitant]
     Active Substance: MIDAZOLAM
     Indication: SEDATION
  17. OXYGEN. [Concomitant]
     Active Substance: OXYGEN
     Dosage: 13 L
     Route: 055
     Dates: start: 20201220
  18. OXYGEN. [Concomitant]
     Active Substance: OXYGEN
     Dosage: 9 L
     Route: 055
     Dates: start: 20201220
  19. OXYGEN. [Concomitant]
     Active Substance: OXYGEN
     Dosage: 25 UNK
     Route: 007
     Dates: start: 20210114
  20. DEXMEDETOMIDINE. [Concomitant]
     Active Substance: DEXMEDETOMIDINE
     Indication: ANXIETY
     Dosage: DRIPPING
     Dates: start: 20201220
  21. DIPYRONE [Concomitant]
     Active Substance: DIPYRONE
     Indication: PYREXIA
     Dosage: PRN
     Dates: start: 20201219
  22. ATENOLOL. [Concomitant]
     Active Substance: ATENOLOL
     Indication: HYPERTENSION
  23. AMLODIPINE [Concomitant]
     Active Substance: AMLODIPINE BESYLATE
     Indication: HYPERTENSION
  24. OXYGEN. [Concomitant]
     Active Substance: OXYGEN
     Dosage: 100 %
     Route: 007
     Dates: start: 20201224
  25. OXYGEN. [Concomitant]
     Active Substance: OXYGEN
     Dosage: 50 UNK
     Route: 007
     Dates: start: 20200103
  26. POTASSIUM CHLORIDE. [Concomitant]
     Active Substance: POTASSIUM CHLORIDE
     Indication: HYPOKALAEMIA
     Dosage: 10 %
     Dates: start: 20201220
  27. FENTANYL. [Concomitant]
     Active Substance: FENTANYL
     Indication: ENDOTRACHEAL INTUBATION
     Dosage: 1 ML
     Dates: start: 20201220, end: 20201220
  28. OXYGEN. [Concomitant]
     Active Substance: OXYGEN
     Dosage: 50 UNK
     Route: 007
     Dates: start: 20201230
  29. OXYGEN. [Concomitant]
     Active Substance: OXYGEN
     Dosage: 55 UNK
     Route: 007
     Dates: start: 20201226
  30. OXYGEN. [Concomitant]
     Active Substance: OXYGEN
     Dosage: 50 UNK
     Route: 007
     Dates: start: 20201230
  31. OXYGEN. [Concomitant]
     Active Substance: OXYGEN
     Dosage: 8 L/MIN
     Route: 007
     Dates: start: 20201220
  32. OXYGEN. [Concomitant]
     Active Substance: OXYGEN
     Dosage: 100 %
     Route: 007
     Dates: start: 20201221
  33. OXYGEN. [Concomitant]
     Active Substance: OXYGEN
     Dosage: 21 UNK
     Route: 007
     Dates: start: 20210116
  34. OXYGEN. [Concomitant]
     Active Substance: OXYGEN
     Dosage: 21 UNK
     Route: 007
     Dates: start: 20210117
  35. OXYGEN. [Concomitant]
     Active Substance: OXYGEN
     Dosage: 21 UNK
     Route: 007
     Dates: start: 20210115
  36. DEXAMETHASONE. [Concomitant]
     Active Substance: DEXAMETHASONE
     Indication: COVID-19 PNEUMONIA
     Dosage: 6 MG, QD
     Dates: start: 20201220
  37. FUROSEMIDE. [Concomitant]
     Active Substance: FUROSEMIDE
     Indication: HYPERTENSION
  38. OXYGEN. [Concomitant]
     Active Substance: OXYGEN
     Dosage: 75 UNK
     Route: 007
     Dates: start: 20201227
  39. OXYGEN. [Concomitant]
     Active Substance: OXYGEN
     Dosage: 100 UNK
     Route: 007
     Dates: start: 20201221
  40. OXYGEN. [Concomitant]
     Active Substance: OXYGEN
     Dosage: 50 %
     Route: 007
     Dates: start: 20210102
  41. OXYGEN. [Concomitant]
     Active Substance: OXYGEN
     Dosage: 50 UNK
     Route: 007
     Dates: start: 20201231
  42. OXYGEN. [Concomitant]
     Active Substance: OXYGEN
     Dosage: 25 UNK
     Route: 007
     Dates: start: 20210113
  43. OXYGEN. [Concomitant]
     Active Substance: OXYGEN
     Dosage: 25 UNK
     Route: 007
     Dates: start: 20210113
  44. ENOXAPARIN [Concomitant]
     Active Substance: ENOXAPARIN
     Indication: DEEP VEIN THROMBOSIS
     Dosage: 40 MG, QD
     Dates: start: 20201219
  45. OMEPRAZOLE. [Concomitant]
     Active Substance: OMEPRAZOLE
     Dosage: 40 MG
     Dates: start: 20201219
  46. LOSARTANA POTASSICA [Concomitant]
     Active Substance: LOSARTAN
     Indication: HYPERTENSION
  47. CISATRACURIUM. [Concomitant]
     Active Substance: CISATRACURIUM
     Indication: SEDATION
  48. BROMOPRIDE [Concomitant]
     Active Substance: BROMOPRIDE
  49. RED BLOOD CELLS [Concomitant]
     Active Substance: HUMAN RED BLOOD CELL
     Indication: ANAEMIA
  50. NORADRENALINE (NORPINEPHRINE) [Concomitant]
     Active Substance: NOREPINEPHRINE
     Indication: HYPOTENSION
     Dosage: UNK
     Dates: start: 20021221, end: 20210117
  51. PLACEBO [Suspect]
     Active Substance: UNSPECIFIED INGREDIENT
     Indication: COVID-19 PNEUMONIA
     Dosage: UNK
     Route: 042
     Dates: start: 20201220
  52. OXYGEN. [Concomitant]
     Active Substance: OXYGEN
     Dosage: 100 UNK
     Route: 007
     Dates: start: 20201222
  53. OXYGEN. [Concomitant]
     Active Substance: OXYGEN
     Dosage: 60 UNK
     Route: 007
     Dates: start: 20210101
  54. PROPOFOL. [Concomitant]
     Active Substance: PROPOFOL
     Indication: ENDOTRACHEAL INTUBATION
  55. OXYGEN. [Concomitant]
     Active Substance: OXYGEN
     Dosage: 50 %
     Route: 007
     Dates: start: 20201229
  56. OXYGEN. [Concomitant]
     Active Substance: OXYGEN
     Dosage: 55 UNK
     Route: 007
     Dates: start: 20201226
  57. OXYGEN. [Concomitant]
     Active Substance: OXYGEN
     Dosage: 60 UNK
     Route: 007
     Dates: start: 20201225
  58. OXYGEN. [Concomitant]
     Active Substance: OXYGEN
     Dosage: 65 UNK
     Route: 007
     Dates: start: 20201228
  59. OXYGEN. [Concomitant]
     Active Substance: OXYGEN
     Dosage: 100 UNK
     Route: 007
     Dates: start: 20201220
  60. OXYGEN. [Concomitant]
     Active Substance: OXYGEN
     Dosage: 8 L
     Route: 055
     Dates: start: 20201220
  61. OXYGEN. [Concomitant]
     Active Substance: OXYGEN
     Dosage: 100 UNK
     Route: 007
     Dates: start: 20201221
  62. OXYGEN. [Concomitant]
     Active Substance: OXYGEN
     Dosage: 75 UNK
     Route: 007
     Dates: start: 20201227
  63. AMLODIPINE [Concomitant]
     Active Substance: AMLODIPINE BESYLATE
     Indication: HYPERTENSION
     Dosage: 5 MG, QD
     Dates: start: 20201219, end: 20201220
  64. FLUOXETINE [Concomitant]
     Active Substance: FLUOXETINE HYDROCHLORIDE
     Indication: DEPRESSION
     Dosage: 20 MG, QD
     Dates: start: 20201219, end: 20201220
  65. SUXAMETHONIUM [Concomitant]
     Active Substance: SUCCINYLCHOLINE
     Indication: ENDOTRACHEAL INTUBATION

REACTIONS (2)
  - Septic shock [Recovered/Resolved]
  - Renal impairment [Not Recovered/Not Resolved]

NARRATIVE: CASE EVENT DATE: 20201226
